FAERS Safety Report 5713205-4 (Version None)
Quarter: 2008Q2

REPORT INFORMATION
  Report Type: 
  Country: None (occurrence: None)
  Receive Date: 20080422
  Receipt Date: 19950927
  Transmission Date: 20081010
  Serious: Yes (Death)
  Sender: FDA-Public Use
  Company Number: DE-ROCHE-51816

PATIENT
  Age: 74 Year
  Sex: Male
  Weight: 56 kg

DRUGS (7)
  1. CEFTRIAXONE SODIUM [Suspect]
     Route: 042
     Dates: start: 19950115, end: 19950116
  2. ANTIHYPERTENSIVE [Concomitant]
     Indication: HYPERTENSION
  3. DIURETIC NOS [Concomitant]
  4. VITAMIN [Concomitant]
  5. WHOLE BLOOD [Concomitant]
  6. CARDIAC MEDICATION NOS [Concomitant]
  7. SECRETOLYTIC [Concomitant]

REACTIONS (1)
  - DEATH [None]
